FAERS Safety Report 8516568-X (Version None)
Quarter: 2012Q3

REPORT INFORMATION
  Report Type: 
  Country: None (occurrence: None)
  Receive Date: 20120718
  Receipt Date: 20120705
  Transmission Date: 20120928
  Serious: Yes (Hospitalization, Other)
  Sender: FDA-Public Use
  Company Number: US-ELI_LILLY_AND_COMPANY-US201207002289

PATIENT
  Sex: Female

DRUGS (2)
  1. LEVEMIR [Concomitant]
  2. HUMALOG [Suspect]
     Indication: DIABETES MELLITUS
     Dosage: UNK UNK, PRN
     Dates: start: 20090101

REACTIONS (4)
  - BLOOD GLUCOSE INCREASED [None]
  - COMA [None]
  - HYPOACUSIS [None]
  - VISUAL ACUITY REDUCED [None]
